FAERS Safety Report 25586937 (Version 1)
Quarter: 2025Q3

REPORT INFORMATION
  Report Type: Spontaneous
  Country: US (occurrence: US)
  Receive Date: 20250721
  Receipt Date: 20250721
  Transmission Date: 20251021
  Serious: No
  Sender: Phathom Pharmaceuticals
  Company Number: US-PHATHOM PHARMACEUTICALS INC.-2025PHT01147

PATIENT
  Age: 44 Year
  Sex: Female

DRUGS (12)
  1. VOQUEZNA [Suspect]
     Active Substance: VONOPRAZAN FUMARATE
     Indication: Gastric ulcer
     Dosage: 20 MG, 1X/DAY
     Route: 048
     Dates: start: 20241210, end: 20250507
  2. VITAMIN A [Concomitant]
     Active Substance: VITAMIN A
  3. SENNA LEAF [Concomitant]
     Active Substance: SENNA LEAF
  4. NITROGLYCERIN [Concomitant]
     Active Substance: NITROGLYCERIN
  5. ONDANSETRON [Concomitant]
     Active Substance: ONDANSETRON
  6. DULOXETINE [Concomitant]
     Active Substance: DULOXETINE
  7. FAMOTIDINE [Concomitant]
     Active Substance: FAMOTIDINE
  8. CARVEDILOL [Concomitant]
     Active Substance: CARVEDILOL
  9. BUDESONIDE [Concomitant]
     Active Substance: BUDESONIDE
  10. BACLOFEN [Concomitant]
     Active Substance: BACLOFEN
  11. ATORVASTATIN [Concomitant]
     Active Substance: ATORVASTATIN
  12. VITAMIN B12 [Concomitant]
     Active Substance: CYANOCOBALAMIN

REACTIONS (6)
  - Feeding disorder [Unknown]
  - Pain [Unknown]
  - Dyspepsia [Unknown]
  - Vomiting [Unknown]
  - Product use issue [Unknown]
  - Product use in unapproved indication [Recovered/Resolved]

NARRATIVE: CASE EVENT DATE: 20241210
